FAERS Safety Report 15056398 (Version 1)
Quarter: 2018Q2

REPORT INFORMATION
  Report Type: Spontaneous
  Country: US (occurrence: US)
  Receive Date: 20180604
  Receipt Date: 20180604
  Transmission Date: 20180711
  Serious: Yes (Life-Threatening, Other)
  Sender: FDA-Public Use
  Company Number: None

PATIENT
  Age: 64 Year
  Sex: Female
  Weight: 70.65 kg

DRUGS (12)
  1. LISINOPRIL. [Concomitant]
     Active Substance: LISINOPRIL
  2. VITAMIN B-6/FOLIC/B-12 [Concomitant]
  3. TYLENOL [Concomitant]
     Active Substance: ACETAMINOPHEN
  4. PEA PROTEIN [Concomitant]
  5. KNEE SUPPORTS [Concomitant]
  6. LEVOFLOXACIN. [Suspect]
     Active Substance: LEVOFLOXACIN
     Indication: PNEUMONIA
     Route: 048
     Dates: start: 20180329, end: 20180405
  7. PRASUGREL (EFFIENT) [Concomitant]
  8. PRIMAL PLANTS [Concomitant]
  9. ELIQUIS [Concomitant]
     Active Substance: APIXABAN
  10. DICLOFENAC SODIUM. [Concomitant]
     Active Substance: DICLOFENAC SODIUM
  11. PRIMAL PLANTS [Concomitant]
  12. PEA PROTEIN [Concomitant]

REACTIONS (11)
  - Rotator cuff syndrome [None]
  - Pain in extremity [None]
  - Insomnia [None]
  - Asthenia [None]
  - Amnesia [None]
  - Throat tightness [None]
  - Musculoskeletal pain [None]
  - Choking [None]
  - Arthralgia [None]
  - Diarrhoea [None]
  - Urinary tract infection [None]

NARRATIVE: CASE EVENT DATE: 20180329
